FAERS Safety Report 8523129-5 (Version None)
Quarter: 2012Q3

REPORT INFORMATION
  Report Type: 
  Country: None (occurrence: None)
  Receive Date: 20120720
  Receipt Date: 20120716
  Transmission Date: 20120928
  Serious: No
  Sender: FDA-Public Use
  Company Number: US-PFIZER INC-2012171215

PATIENT
  Sex: Female
  Weight: 90.703 kg

DRUGS (1)
  1. ADVIL ALLERGY SINUS [Suspect]
     Indication: PROPHYLAXIS
     Dosage: 200 MG, 2X/DAY
     Dates: start: 20120716

REACTIONS (2)
  - BRONCHITIS [None]
  - COUGH [None]
